FAERS Safety Report 24996137 (Version 1)
Quarter: 2025Q1

REPORT INFORMATION
  Report Type: Spontaneous
  Country: CZ (occurrence: CZ)
  Receive Date: 20250221
  Receipt Date: 20250221
  Transmission Date: 20250408
  Serious: Yes (Death, Other)
  Sender: SANOFI AVENTIS
  Company Number: CZ-SA-2024SA356983

PATIENT
  Sex: Male

DRUGS (10)
  1. AVALGLUCOSIDASE ALFA [Suspect]
     Active Substance: AVALGLUCOSIDASE ALFA
  2. QUETIAPINE FUMARATE [Concomitant]
     Active Substance: QUETIAPINE FUMARATE
     Indication: Anxiety
  3. QUETIAPINE FUMARATE [Concomitant]
     Active Substance: QUETIAPINE FUMARATE
     Indication: Restlessness
  4. PROMETHAZINE HYDROCHLORIDE [Concomitant]
     Active Substance: PROMETHAZINE HYDROCHLORIDE
  5. CIPRALEX [Concomitant]
     Active Substance: ESCITALOPRAM OXALATE
     Route: 048
  6. DICLOFENAC SODIUM [Concomitant]
     Active Substance: DICLOFENAC SODIUM
     Indication: Back pain
  7. PAROXETINE [Concomitant]
     Active Substance: PAROXETINE
     Dates: start: 20231012
  8. ZALDIAR [Concomitant]
     Active Substance: ACETAMINOPHEN\TRAMADOL HYDROCHLORIDE
  9. Mydocalm [Concomitant]
  10. TELMISARTAN [Concomitant]
     Active Substance: TELMISARTAN
     Dates: start: 20241121

REACTIONS (6)
  - Cardiopulmonary failure [Fatal]
  - Cardiac hypertrophy [Fatal]
  - Cardiac steatosis [Fatal]
  - Arteriosclerosis [Fatal]
  - Sleep apnoea syndrome [Fatal]
  - Hepatic steatosis [Fatal]
